FAERS Safety Report 9720105 (Version 1)
Quarter: 2013Q4

REPORT INFORMATION
  Report Type: Other
  Country: JP (occurrence: JP)
  Receive Date: 20131128
  Receipt Date: 20131128
  Transmission Date: 20140711
  Serious: Yes (Hospitalization)
  Sender: FDA-Public Use
  Company Number: JP-BRISTOL-MYERS SQUIBB COMPANY-19842483

PATIENT
  Age: 78 Year
  Sex: Female

DRUGS (2)
  1. CARBOPLATIN [Suspect]
     Indication: COLON NEOPLASM
     Dosage: CYCLES: 04
     Dates: start: 200802
  2. PACLITAXEL [Suspect]
     Indication: COLON NEOPLASM
     Dosage: CYCLES: 04
     Dates: start: 200802

REACTIONS (2)
  - Pulmonary trichosporonosis [Recovering/Resolving]
  - Bronchiectasis [Recovering/Resolving]
